FAERS Safety Report 6880292-X (Version None)
Quarter: 2010Q3

REPORT INFORMATION
  Report Type: 
  Country: None (occurrence: None)
  Receive Date: 20100728
  Receipt Date: 20100720
  Transmission Date: 20110219
  Serious: Yes (Hospitalization)
  Sender: FDA-Public Use
  Company Number: US-SANOFI-AVENTIS-2010SA042519

PATIENT
  Age: 60 Year
  Sex: Female

DRUGS (2)
  1. LANTUS [Suspect]
     Indication: TYPE 2 DIABETES MELLITUS
     Dosage: VARIES DOSE 26-36 UNITS A DAY
     Route: 058
     Dates: start: 20000101
  2. OPTICLICK [Suspect]
     Dosage: LOT NUMBER NO5 OR NO9
     Dates: start: 20020101

REACTIONS (3)
  - FALL [None]
  - HIP FRACTURE [None]
  - VISUAL ACUITY REDUCED [None]
